FAERS Safety Report 19698451 (Version 2)
Quarter: 2021Q4

REPORT INFORMATION
  Report Type: Report from Study
  Country: US (occurrence: US)
  Receive Date: 20210813
  Receipt Date: 20211029
  Transmission Date: 20220303
  Serious: Yes (Other)
  Sender: FDA-Public Use
  Company Number: US-PFIZER INC-202100986846

PATIENT
  Sex: Male

DRUGS (11)
  1. LIDOCAINE HYDROCHLORIDE [Suspect]
     Active Substance: LIDOCAINE HYDROCHLORIDE
     Indication: Long QT syndrome
     Dosage: 60 UG/KG (PER MIN)
     Route: 042
  2. LIDOCAINE HYDROCHLORIDE [Suspect]
     Active Substance: LIDOCAINE HYDROCHLORIDE
     Indication: Ventricular arrhythmia
  3. LIDOCAINE HYDROCHLORIDE [Suspect]
     Active Substance: LIDOCAINE HYDROCHLORIDE
     Indication: Torsade de pointes
  4. LIDOCAINE HYDROCHLORIDE [Suspect]
     Active Substance: LIDOCAINE HYDROCHLORIDE
     Indication: Atrioventricular block complete
  5. LIDOCAINE HYDROCHLORIDE [Suspect]
     Active Substance: LIDOCAINE HYDROCHLORIDE
     Indication: Cardiac resynchronisation therapy
  6. MEXILETINE [Concomitant]
     Active Substance: MEXILETINE
     Indication: Cardiac resynchronisation therapy
     Dosage: UNK
  7. MEXILETINE [Concomitant]
     Active Substance: MEXILETINE
     Indication: Cardiovascular somatic symptom disorder
  8. FLECAINIDE [Concomitant]
     Active Substance: FLECAINIDE
     Indication: Cardiac resynchronisation therapy
     Dosage: UNK
  9. FLECAINIDE [Concomitant]
     Active Substance: FLECAINIDE
     Indication: Cardiovascular somatic symptom disorder
  10. DILTIAZEM [Concomitant]
     Active Substance: DILTIAZEM
     Dosage: UNK
  11. PROPRANOLOL [Concomitant]
     Active Substance: PROPRANOLOL HYDROCHLORIDE
     Dosage: UNK

REACTIONS (1)
  - Seizure [Unknown]
